FAERS Safety Report 13365774 (Version 1)
Quarter: 2017Q1

REPORT INFORMATION
  Report Type: Spontaneous
  Country: US (occurrence: US)
  Receive Date: 20170323
  Receipt Date: 20170323
  Transmission Date: 20170429
  Serious: No
  Sender: FDA-Public Use
  Company Number: US-WARNER CHILCOTT-2016-002202

PATIENT
  Age: 75 Year
  Sex: Female

DRUGS (11)
  1. ALPRAZOLAM. [Concomitant]
     Active Substance: ALPRAZOLAM
     Indication: SLEEP DISORDER
  2. GLYCOPYRROLATE                     /00196202/ [Concomitant]
     Active Substance: GLYCOPYRROLATE
     Indication: MUSCLE SPASMS
     Dosage: 2 MG, QD
     Route: 048
  3. CELECOXIB. [Concomitant]
     Active Substance: CELECOXIB
     Indication: ARTHRITIS
     Dosage: 200 MG, QD
     Route: 048
  4. ESTRACE [Suspect]
     Active Substance: ESTRADIOL
     Dosage: TWICE PER WEEK
     Route: 067
     Dates: start: 20160912, end: 20160922
  5. NEXIUM [Concomitant]
     Active Substance: ESOMEPRAZOLE MAGNESIUM
     Indication: GASTROOESOPHAGEAL REFLUX DISEASE
     Dosage: 40 MG, QD
     Route: 048
     Dates: start: 2001
  6. BENICAR [Concomitant]
     Active Substance: OLMESARTAN MEDOXOMIL
     Indication: MIGRAINE
     Dosage: 40 MG, QD
     Route: 048
  7. VALACYCLOVIR HYDROCHLORIDE. [Concomitant]
     Active Substance: VALACYCLOVIR HYDROCHLORIDE
     Indication: HERPES VIRUS INFECTION
     Dosage: 500 MG, PRN
     Route: 048
  8. DOXICYCLINE                        /00055701/ [Concomitant]
     Active Substance: DOXYCYCLINE
     Indication: URINARY TRACT INFECTION
     Dosage: UNK
     Route: 048
     Dates: start: 20160922
  9. SALT [Concomitant]
     Active Substance: SODIUM CHLORIDE
     Dosage: UNK, TID
     Route: 048
  10. HYDROCODONE [Concomitant]
     Active Substance: HYDROCODONE
     Indication: PAIN
     Dosage: 7.5 MG, PRN
     Route: 048
  11. ALPRAZOLAM. [Concomitant]
     Active Substance: ALPRAZOLAM
     Indication: ANXIETY
     Dosage: 1 MG, QD
     Route: 048

REACTIONS (2)
  - Productive cough [Not Recovered/Not Resolved]
  - Urticaria [Not Recovered/Not Resolved]

NARRATIVE: CASE EVENT DATE: 20160919
